FAERS Safety Report 5575698-5 (Version None)
Quarter: 2007Q4

REPORT INFORMATION
  Report Type: 
  Country: None (occurrence: None)
  Receive Date: 20071226
  Receipt Date: 20071210
  Transmission Date: 20080405
  Serious: Yes (Disabling, Other)
  Sender: FDA-Public Use
  Company Number: ADE2007-0075

PATIENT
  Age: 32 Year
  Sex: Female

DRUGS (4)
  1. CITALOPRAM HYDROBROMIDE [Suspect]
     Indication: DEPRESSION
     Dosage: 40 MG - QD - ORAL
     Route: 048
     Dates: end: 20070101
  2. CLINDAMYCIN HCL [Concomitant]
  3. ERYTHROMYCIN [Concomitant]
  4. SERETIDE [Concomitant]

REACTIONS (5)
  - BLOOD BILIRUBIN INCREASED [None]
  - MIGRAINE [None]
  - PHOTOPHOBIA [None]
  - VISUAL DISTURBANCE [None]
  - VISUAL FIELD DEFECT [None]
